FAERS Safety Report 7573847-0 (Version None)
Quarter: 2011Q2

REPORT INFORMATION
  Report Type: 
  Country: None (occurrence: None)
  Receive Date: 20110627
  Receipt Date: 20110608
  Transmission Date: 20111010
  Serious: Yes (Hospitalization, Congenital Anomaly)
  Sender: FDA-Public Use
  Company Number: A0929928A

PATIENT
  Sex: Female
  Weight: 2.2 kg

DRUGS (3)
  1. PAXIL [Suspect]
     Indication: PRODUCT USED FOR UNKNOWN INDICATION
     Dosage: 40MG UNKNOWN
     Route: 064
  2. TOBACCO [Concomitant]
     Indication: TOBACCO USER
     Route: 064
  3. ALCOHOL [Concomitant]
     Indication: ALCOHOLIC
     Route: 064

REACTIONS (5)
  - CONGENITAL MUSCULOSKELETAL ANOMALY [None]
  - DRUG EXPOSURE DURING PREGNANCY [None]
  - EAR MALFORMATION [None]
  - VENTRICULAR SEPTAL DEFECT [None]
  - CLEFT LIP AND PALATE [None]
